FAERS Safety Report 7117498-0 (Version None)
Quarter: 2010Q4

REPORT INFORMATION
  Report Type: 
  Country: None (occurrence: None)
  Receive Date: 20101122
  Receipt Date: 20101117
  Transmission Date: 20110411
  Serious: Yes (Death)
  Sender: FDA-Public Use
  Company Number: PHHY2010US78302

PATIENT
  Sex: Male

DRUGS (1)
  1. EXJADE [Suspect]
     Indication: THALASSAEMIA
     Dosage: 2500 MG, QD
     Route: 048

REACTIONS (2)
  - CARDIAC FAILURE ACUTE [None]
  - TREATMENT NONCOMPLIANCE [None]
